FAERS Safety Report 10016380 (Version 3)
Quarter: 2014Q2

REPORT INFORMATION
  Report Type: Report from Study
  Country: US (occurrence: US)
  Receive Date: 20140317
  Receipt Date: 20140615
  Transmission Date: 20141212
  Serious: No
  Sender: FDA-Public Use
  Company Number: PHEH2014US004291

PATIENT
  Sex: Male
  Weight: 108.84 kg

DRUGS (9)
  1. SYNTHROID [Concomitant]
     Dosage: UNK UKN, UNK
  2. PLAVIX [Concomitant]
     Dosage: UNK UKN, UNK
  3. ASPIRIN [Concomitant]
     Dosage: UNK UKN, UNK
  4. METOPROLOL [Concomitant]
     Dosage: UNK UKN, UNK
  5. FOLIC ACID [Concomitant]
     Dosage: UNK UKN, UNK
  6. ZETIA [Concomitant]
     Dosage: UNK UKN, UNK
  7. TRAMADOL [Concomitant]
     Dosage: UNK UKN, UNK
  8. LIPITOR [Concomitant]
     Dosage: UNK UKN, UNK
  9. TASIGNA [Suspect]
     Indication: CHRONIC MYELOID LEUKAEMIA
     Dosage: 2 DF, QD
     Route: 048
     Dates: start: 201401

REACTIONS (4)
  - Blood testosterone decreased [Unknown]
  - Weight increased [Unknown]
  - Increased appetite [Unknown]
  - Fatigue [Unknown]
